FAERS Safety Report 6179598-1 (Version None)
Quarter: 2009Q2

REPORT INFORMATION
  Report Type: 
  Country: None (occurrence: None)
  Receive Date: 20090501
  Receipt Date: 20090501
  Transmission Date: 20091009
  Serious: Yes (Disabling)
  Sender: FDA-Public Use
  Company Number: None

PATIENT
  Age: 47 Year
  Sex: Female
  Weight: 68.0396 kg

DRUGS (2)
  1. CHANTIX [Suspect]
     Indication: SMOKING CESSATION THERAPY
     Dosage: 0.5 MG 2/DAY FOR 7 DAYS PO
     Route: 048
     Dates: start: 20090316, end: 20090322
  2. CHANTIX [Suspect]
     Indication: SMOKING CESSATION THERAPY
     Dosage: 1 MG 2/DAY 24 DAYS PO
     Route: 048
     Dates: start: 20090323, end: 20090410

REACTIONS (6)
  - AGITATION [None]
  - ANGER [None]
  - FAMILY STRESS [None]
  - FEELING ABNORMAL [None]
  - FEELING OF DESPAIR [None]
  - IRRITABILITY [None]
